FAERS Safety Report 9539352 (Version 3)
Quarter: 2013Q3

REPORT INFORMATION
  Report Type: Spontaneous
  Country: CL (occurrence: CL)
  Receive Date: 20130920
  Receipt Date: 20130930
  Transmission Date: 20140515
  Serious: Yes (Death)
  Sender: FDA-Public Use
  Company Number: CL-PFIZER INC-2013262190

PATIENT
  Age: 66 Year
  Sex: Female

DRUGS (6)
  1. ZYVOX [Suspect]
     Indication: SEPTIC SHOCK
     Dosage: 600 MG, 2X/DAY
     Dates: start: 20130904, end: 20130907
  2. ZYVOX [Suspect]
     Indication: ENTEROCOCCAL SEPSIS
  3. IMIPENEM [Concomitant]
     Dosage: 500 MG, 3X/DAY
  4. HYDROCORTISON [Concomitant]
     Dosage: UNK
  5. FENTANYL [Concomitant]
  6. DIPYRONE [Concomitant]

REACTIONS (2)
  - Death [Fatal]
  - Platelet count decreased [Recovered/Resolved]
